FAERS Safety Report 13928111 (Version 1)
Quarter: 2017Q3

REPORT INFORMATION
  Report Type: Spontaneous
  Country: US (occurrence: None)
  Receive Date: 20170831
  Receipt Date: 20170831
  Transmission Date: 20171127
  Serious: Yes (Hospitalization)
  Sender: FDA-Public Use
  Company Number: None

PATIENT
  Age: 34 Year
  Sex: Female

DRUGS (5)
  1. MORPHINE [Concomitant]
     Active Substance: MORPHINE
  2. ADVIL [Concomitant]
     Active Substance: IBUPROFEN
  3. NEUPOGEN [Suspect]
     Active Substance: FILGRASTIM
     Indication: MALIGNANT CONNECTIVE TISSUE NEOPLASM
     Route: 058
     Dates: start: 20170408
  4. OXYCODONE [Concomitant]
     Active Substance: OXYCODONE
  5. METFORMIN [Concomitant]
     Active Substance: METFORMIN HYDROCHLORIDE

REACTIONS (1)
  - Cancer pain [None]

NARRATIVE: CASE EVENT DATE: 2017
